FAERS Safety Report 5714429-2 (Version None)
Quarter: 2008Q2

REPORT INFORMATION
  Report Type: 
  Country: None (occurrence: None)
  Receive Date: 20080423
  Receipt Date: 20030303
  Transmission Date: 20081010
  Serious: Yes (Death)
  Sender: FDA-Public Use
  Company Number: US-ROCHE-333114

PATIENT
  Age: 72 Year
  Sex: Male
  Weight: 98.5 kg

DRUGS (1)
  1. ISOTRETINOIN [Suspect]
     Route: 048

REACTIONS (1)
  - DEATH [None]
